FAERS Safety Report 8083812-5 (Version None)
Quarter: 2012Q1

REPORT INFORMATION
  Report Type: 
  Country: None (occurrence: None)
  Receive Date: 20120128
  Receipt Date: 20110302
  Transmission Date: 20120608
  Serious: No
  Sender: FDA-Public Use
  Company Number: US-ABBOTT-11P-163-0702212-00

PATIENT
  Sex: Female
  Weight: 63.106 kg

DRUGS (2)
  1. HUMIRA [Suspect]
     Indication: CROHN'S DISEASE
  2. PREDNISONE TAB [Concomitant]
     Indication: PRODUCT USED FOR UNKNOWN INDICATION
     Dosage: USE ONLY WHEN FLARES OCCUR

REACTIONS (3)
  - CHEST PAIN [None]
  - ABDOMINAL PAIN [None]
  - CROHN'S DISEASE [None]
